FAERS Safety Report 19009985 (Version 1)
Quarter: 2021Q1

REPORT INFORMATION
  Report Type: Spontaneous
  Country: FR (occurrence: FR)
  Receive Date: 20210316
  Receipt Date: 20210316
  Transmission Date: 20210420
  Serious: Yes (Life-Threatening)
  Sender: FDA-Public Use
  Company Number: FR-B.BRAUN MEDICAL INC.-2108018

PATIENT
  Age: 75 Year
  Sex: Male
  Weight: 65 kg

DRUGS (5)
  1. HEPARIN [Concomitant]
     Active Substance: HEPARIN SODIUM
  2. ACETAMINOPHEN INJECTION 1,000 MG/100 ML (10 MG/ML) ? NDA 204957 [Suspect]
     Active Substance: ACETAMINOPHEN
  3. LIDOCAINE. [Concomitant]
     Active Substance: LIDOCAINE
  4. MIDAZOLAM. [Concomitant]
     Active Substance: MIDAZOLAM
  5. SUFENTANIL CITRATE. [Concomitant]
     Active Substance: SUFENTANIL CITRATE

REACTIONS (1)
  - Circulatory collapse [None]
